FAERS Safety Report 5759415-1 (Version None)
Quarter: 2008Q2

REPORT INFORMATION
  Report Type: 
  Country: None (occurrence: None)
  Receive Date: 20080604
  Receipt Date: 20080604
  Transmission Date: 20081010
  Serious: Yes (Life-Threatening, Hospitalization)
  Sender: FDA-Public Use
  Company Number: None

PATIENT
  Sex: Male
  Weight: 68.0396 kg

DRUGS (1)
  1. DIGITEK 0.25 [Suspect]
     Indication: CARDIAC DISORDER
     Dosage: 0.25 1 X DAILY
     Dates: end: 20080425

REACTIONS (3)
  - BRADYCARDIA [None]
  - DIZZINESS [None]
  - VOMITING [None]
